FAERS Safety Report 4955721-9 (Version None)
Quarter: 2006Q1

REPORT INFORMATION
  Report Type: 
  Country: None (occurrence: None)
  Receive Date: 20060328
  Receipt Date: 20060221
  Transmission Date: 20060701
  Serious: Yes (Other)
  Sender: FDA-Public Use
  Company Number: GB-ROCHE-438240

PATIENT
  Age: 40 Year
  Sex: Female
  Weight: 63 kg

DRUGS (3)
  1. ROACCUTANE [Suspect]
     Indication: PYODERMA
     Route: 048
     Dates: start: 20051018
  2. DIANETTE [Concomitant]
     Indication: ACNE
     Route: 048
     Dates: start: 20051017
  3. TETRALYSAL [Concomitant]
     Indication: ACNE
     Route: 048
     Dates: start: 20051013, end: 20051018

REACTIONS (1)
  - GINGIVAL RECESSION [None]
